FAERS Safety Report 10189359 (Version 2)
Quarter: 2014Q2

REPORT INFORMATION
  Report Type: Spontaneous
  Country: FR (occurrence: FR)
  Receive Date: 20140522
  Receipt Date: 20140522
  Transmission Date: 20141212
  Serious: Yes (Hospitalization)
  Sender: FDA-Public Use
  Company Number: FR-TEVA-479570ISR

PATIENT
  Age: 62 Year
  Sex: Male

DRUGS (10)
  1. AZILECT [Suspect]
     Indication: PARKINSON^S DISEASE
     Dosage: 1 MILLIGRAM DAILY;
     Route: 048
  2. SIFROL [Suspect]
     Route: 048
  3. STALEVO [Suspect]
     Indication: PARKINSON^S DISEASE
     Dosage: 2 DOSAGE FORMS DAILY;
     Route: 048
  4. NOVORAPID [Concomitant]
  5. XATRAL LP 10 MG [Concomitant]
  6. AMLOR 5 MG [Concomitant]
     Dates: end: 20140410
  7. GLUCOPHAGE 1G [Concomitant]
  8. SMECTA [Concomitant]
     Dates: start: 20140413
  9. GALVUS 50 MG [Concomitant]
     Dates: start: 20140413
  10. NAPROXEN [Concomitant]

REACTIONS (2)
  - Urinary retention [Recovered/Resolved]
  - Prostatomegaly [Unknown]
